FAERS Safety Report 9120180 (Version 4)
Quarter: 2013Q2

REPORT INFORMATION
  Report Type: Spontaneous
  Country: IT (occurrence: IT)
  Receive Date: 20130226
  Receipt Date: 20130403
  Transmission Date: 20140414
  Serious: Yes (Hospitalization, Other)
  Sender: FDA-Public Use
  Company Number: IT-JNJFOC-20130210125

PATIENT
  Age: 39 Year
  Sex: Male

DRUGS (4)
  1. HALDOL [Suspect]
     Indication: INTENTIONAL SELF-INJURY
     Dosage: HALDOL 2 MG/ML DROPS VIAL 30 ML
     Route: 048
     Dates: start: 20130215, end: 20130215
  2. DELORAZEPAM [Suspect]
     Indication: INTENTIONAL SELF-INJURY
     Dosage: EN 1 MG/ML ORAL DROPS VIAL 20 ML
     Route: 048
     Dates: start: 20130215, end: 20130215
  3. ANAFRANIL [Concomitant]
     Indication: PRODUCT USED FOR UNKNOWN INDICATION
     Route: 065
  4. LEXOTAN [Concomitant]
     Indication: PRODUCT USED FOR UNKNOWN INDICATION
     Route: 065

REACTIONS (6)
  - Intentional self-injury [Recovering/Resolving]
  - Bradycardia [Recovering/Resolving]
  - Hypotension [Recovering/Resolving]
  - Oxygen saturation decreased [Recovering/Resolving]
  - Sluggishness [Recovering/Resolving]
  - Sopor [Recovering/Resolving]
